FAERS Safety Report 9733189 (Version 1)
Quarter: 2013Q4

REPORT INFORMATION
  Report Type: Spontaneous
  Country: BE (occurrence: BE)
  Receive Date: 20131205
  Receipt Date: 20131205
  Transmission Date: 20140711
  Serious: Yes (Other)
  Sender: FDA-Public Use
  Company Number: BE-BAYER-2013-145502

PATIENT
  Sex: Female

DRUGS (1)
  1. MIRENA [Suspect]
     Indication: CONTRACEPTION
     Dosage: UNK
     Dates: start: 20130129

REACTIONS (8)
  - Paraesthesia [Recovered/Resolved]
  - Genital haemorrhage [Recovered/Resolved]
  - Amenorrhoea [None]
  - Genital haemorrhage [Recovering/Resolving]
  - Abdominal pain [Not Recovered/Not Resolved]
  - Uterine enlargement [None]
  - Infection [None]
  - Endometrial hypoplasia [None]
